FAERS Safety Report 9404707 (Version 3)
Quarter: 2014Q2

REPORT INFORMATION
  Report Type: Spontaneous
  Country: BR (occurrence: BR)
  Receive Date: 20130717
  Receipt Date: 20140501
  Transmission Date: 20141212
  Serious: Yes (Other)
  Sender: FDA-Public Use
  Company Number: PHHY2013BR075477

PATIENT
  Sex: Male

DRUGS (1)
  1. DIOVAN TRIPLE [Suspect]
     Dosage: 1 DF, (160 MG VALS, 5 MG AMLO AND 12.5 MG HYDR)

REACTIONS (2)
  - Blindness [Unknown]
  - Blood pressure increased [Unknown]
